FAERS Safety Report 8993102 (Version 1)
Quarter: 2013Q1

REPORT INFORMATION
  Report Type: Report from Study
  Country: DE (occurrence: DE)
  Receive Date: 20130102
  Receipt Date: 20130102
  Transmission Date: 20140127
  Serious: Yes (Death)
  Sender: FDA-Public Use
  Company Number: DE-ROCHE-1175470

PATIENT
  Sex: Female
  Weight: 104 kg

DRUGS (5)
  1. TENECTEPLASE [Suspect]
     Indication: ACUTE MYOCARDIAL INFARCTION
     Route: 042
     Dates: start: 20001017, end: 20001017
  2. ENOXAPARIN [Concomitant]
     Indication: ACUTE MYOCARDIAL INFARCTION
     Dosage: DOSE: BOLUS+140 MG/12 HRS
     Route: 058
     Dates: start: 20001017, end: 20121018
  3. BELOC [Concomitant]
     Indication: ACUTE MYOCARDIAL INFARCTION
     Route: 042
     Dates: start: 20001017, end: 20001017
  4. ASPISOL [Concomitant]
     Indication: ACUTE MYOCARDIAL INFARCTION
     Route: 042
     Dates: start: 20001017, end: 20001017
  5. HEPARIN [Concomitant]

REACTIONS (4)
  - Hypotension [Fatal]
  - Pulmonary oedema [Fatal]
  - Cardiogenic shock [Fatal]
  - Cardiac arrest [Fatal]
